FAERS Safety Report 8986708 (Version 1)
Quarter: 2012Q4

REPORT INFORMATION
  Report Type: Report from Study
  Country: CA (occurrence: CA)
  Receive Date: 20121226
  Receipt Date: 20121226
  Transmission Date: 20130627
  Serious: Yes (Other)
  Sender: FDA-Public Use
  Company Number: CA-ROCHE-1169325

PATIENT
  Sex: Male
  Weight: 109 kg

DRUGS (6)
  1. TOCILIZUMAB [Suspect]
     Indication: RHEUMATOID ARTHRITIS
     Route: 042
     Dates: start: 20120820
  2. TOCILIZUMAB [Suspect]
     Route: 042
     Dates: start: 20120917, end: 20121112
  3. ADVAIR [Concomitant]
  4. SINGULAIR [Concomitant]
  5. VENTOLIN [Concomitant]
  6. VITAMIN B [Concomitant]

REACTIONS (2)
  - Condition aggravated [Unknown]
  - Drug ineffective [Unknown]
